FAERS Safety Report 17315471 (Version 2)
Quarter: 2020Q1

REPORT INFORMATION
  Report Type: Spontaneous
  Country: US (occurrence: US)
  Receive Date: 20200124
  Receipt Date: 20200320
  Transmission Date: 20200409
  Serious: No
  Sender: FDA-Public Use
  Company Number: US-ASTRAZENECA-2019SF91628

PATIENT
  Age: 32 Year
  Sex: Male
  Weight: 74.8 kg

DRUGS (6)
  1. IPRAPROIUM BROMIDE-ALBUTEROL SULPHATE [Concomitant]
     Indication: CHRONIC OBSTRUCTIVE PULMONARY DISEASE
     Dosage: DUO-NEB: UNKNOWN DOSE, 1 AMPULE EVERY 6 HOURS OR AS NEEDED. USING IT EVERY 4 HOURS IF SYMBICORT I...
     Route: 055
     Dates: start: 2017
  2. IPRAPROIUM BROMIDE-ALBUTEROL SULPHATE [Concomitant]
     Indication: ASTHMA
     Dosage: DUO-NEB: UNKNOWN DOSE, 1 AMPULE EVERY 6 HOURS OR AS NEEDED. USING IT EVERY 4 HOURS IF SYMBICORT I...
     Route: 055
     Dates: start: 2017
  3. PROVENTAL [Concomitant]
     Indication: ASTHMA
     Dosage: 90.0UG AS REQUIRED
     Route: 055
     Dates: start: 2017
  4. SINGULAIR [Concomitant]
     Active Substance: MONTELUKAST SODIUM
     Indication: HYPERSENSITIVITY
     Dosage: UNKNOWN DOSE AND UNIT DAILY
     Route: 048
     Dates: start: 2017
  5. PROVENTAL [Concomitant]
     Indication: CHRONIC OBSTRUCTIVE PULMONARY DISEASE
     Dosage: 90.0UG AS REQUIRED
     Route: 055
     Dates: start: 2017
  6. SYMBICORT [Suspect]
     Active Substance: BUDESONIDE\FORMOTEROL FUMARATE DIHYDRATE
     Indication: CHRONIC OBSTRUCTIVE PULMONARY DISEASE
     Dosage: 160/4.5 MCG 2 PUFFS TWO TIMES A DAY
     Route: 055
     Dates: start: 2018

REACTIONS (4)
  - Dyspnoea [Unknown]
  - Product dose omission [Unknown]
  - Insurance issue [Unknown]
  - Device issue [Unknown]

NARRATIVE: CASE EVENT DATE: 2018
